FAERS Safety Report 20626036 (Version 1)
Quarter: 2022Q1

REPORT INFORMATION
  Report Type: Report from Study
  Country: US (occurrence: US)
  Receive Date: 20220323
  Receipt Date: 20220323
  Transmission Date: 20220423
  Serious: Yes (Hospitalization)
  Sender: FDA-Public Use
  Company Number: US-GILEAD-2022-0574090

PATIENT
  Sex: Female

DRUGS (1)
  1. AZTREONAM LYSINE [Suspect]
     Active Substance: AZTREONAM LYSINE
     Indication: Cystic fibrosis
     Dosage: 75 MG, BID INHALE VIA ALTERA NEBULIZER FOR 28 DAYS ON THEN 28 DAYS OFF
     Route: 055

REACTIONS (2)
  - Rhinovirus infection [Unknown]
  - Off label use [Not Recovered/Not Resolved]
